FAERS Safety Report 12957105 (Version 1)
Quarter: 2016Q4

REPORT INFORMATION
  Report Type: Spontaneous
  Country: HU (occurrence: HU)
  Receive Date: 20161118
  Receipt Date: 20161118
  Transmission Date: 20170207
  Serious: Yes (Other)
  Sender: FDA-Public Use
  Company Number: PHHY2016HU155213

PATIENT
  Age: 48 Year
  Sex: Male

DRUGS (5)
  1. CONTROLOC [Concomitant]
     Active Substance: PANTOPRAZOLE SODIUM
     Indication: PROPHYLAXIS
     Dosage: 20 MG, BID
     Route: 065
     Dates: start: 20160414
  2. TAFINLAR [Suspect]
     Active Substance: DABRAFENIB MESYLATE
     Indication: MALIGNANT MELANOMA
     Dosage: 150 MG, BID
     Route: 065
     Dates: start: 20160520, end: 20160704
  3. MEKINIST [Suspect]
     Active Substance: TRAMETINIB DIMETHYL SULFOXIDE
     Indication: MALIGNANT MELANOMA
     Dosage: 2 MG, QD
     Route: 065
     Dates: start: 20160520
  4. MEDROL [Concomitant]
     Active Substance: METHYLPREDNISOLONE
     Indication: TOXIC SKIN ERUPTION
     Route: 065
     Dates: start: 20160414
  5. KALDYUM [Concomitant]
     Active Substance: POTASSIUM CHLORIDE
     Indication: TOXIC SKIN ERUPTION
     Dosage: 600 MG, UNK
     Route: 065
     Dates: start: 20160414

REACTIONS (4)
  - Rash pustular [Recovered/Resolved with Sequelae]
  - Rosacea [Recovered/Resolved with Sequelae]
  - Rash [Recovered/Resolved with Sequelae]
  - Aphthous ulcer [Recovered/Resolved]

NARRATIVE: CASE EVENT DATE: 20160615
